FAERS Safety Report 6029364-2 (Version None)
Quarter: 2009Q1

REPORT INFORMATION
  Report Type: 
  Country: None (occurrence: None)
  Receive Date: 20090105
  Receipt Date: 20081219
  Transmission Date: 20090719
  Serious: Yes (Hospitalization)
  Sender: FDA-Public Use
  Company Number: 2008SP025385

PATIENT
  Age: 45 Year
  Sex: Male
  Weight: 82 kg

DRUGS (8)
  1. TEMODAL [Suspect]
     Indication: GLIOBLASTOMA MULTIFORME
     Dosage: 150 MG;QD;PO
     Route: 048
     Dates: start: 20080416, end: 20080808
  2. KEPPRA [Concomitant]
  3. LAMICTAL [Concomitant]
  4. NEXIUM [Concomitant]
  5. MYOLASTAN [Concomitant]
  6. LOVENOX [Concomitant]
  7. DOMINAL FORTE [Concomitant]
  8. CELEBREX [Concomitant]

REACTIONS (2)
  - DISEASE PROGRESSION [None]
  - NUCLEAR MAGNETIC RESONANCE IMAGING BRAIN ABNORMAL [None]
